FAERS Safety Report 8849150 (Version 1)
Quarter: 2012Q4

REPORT INFORMATION
  Report Type: Spontaneous
  Country: US (occurrence: None)
  Receive Date: 20121017
  Receipt Date: 20121017
  Transmission Date: 20130627
  Serious: Yes (Other)
  Sender: FDA-Public Use
  Company Number: None

PATIENT
  Age: 50 Year
  Sex: Female
  Weight: 75.75 kg

DRUGS (2)
  1. KEFLEX [Suspect]
     Indication: UTI
     Dates: start: 20120917, end: 20120917
  2. KEFLEX [Suspect]
     Indication: DYSURIA
     Dates: start: 20120917, end: 20120917

REACTIONS (11)
  - Tremor [None]
  - Chills [None]
  - Headache [None]
  - Pyrexia [None]
  - Nausea [None]
  - Dyspnoea [None]
  - Chills [None]
  - Malaise [None]
  - Vomiting [None]
  - Oesophageal pain [None]
  - Dyspepsia [None]
